FAERS Safety Report 7240697-4 (Version None)
Quarter: 2011Q1

REPORT INFORMATION
  Report Type: 
  Country: None (occurrence: None)
  Receive Date: 20110124
  Receipt Date: 20100710
  Transmission Date: 20110831
  Serious: No
  Sender: FDA-Public Use
  Company Number: US-KINGPHARMUSA00001-K201000889

PATIENT
  Age: 7 Year
  Sex: Male

DRUGS (1)
  1. EPIPEN [Suspect]
     Dosage: 0.3 MG, SINGLE
     Route: 030
     Dates: start: 20100710, end: 20100710

REACTIONS (2)
  - ACCIDENTAL EXPOSURE [None]
  - INJECTION SITE HAEMATOMA [None]
